FAERS Safety Report 9742800 (Version 2)
Quarter: 2014Q1

REPORT INFORMATION
  Report Type: Report from Study
  Country: US (occurrence: US)
  Receive Date: 20131210
  Receipt Date: 20140121
  Transmission Date: 20141002
  Serious: Yes (Life-Threatening, Hospitalization)
  Sender: FDA-Public Use
  Company Number: US-JNJFOC-20131200840

PATIENT
  Age: 61 Year
  Sex: Male
  Weight: 97.98 kg

DRUGS (9)
  1. ZYTIGA [Suspect]
     Indication: ADENOCARCINOMA
     Dosage: STRENGTH 250 MG
     Route: 048
     Dates: start: 201301, end: 20130722
  2. ZOFRAN [Concomitant]
     Indication: NAUSEA
     Dates: start: 20100910
  3. MS CONTIN [Concomitant]
     Indication: PAIN
     Dates: start: 20100910
  4. RESTORIL [Concomitant]
     Indication: SLEEP DISORDER THERAPY
     Dates: start: 20100910
  5. VERAPAMIL [Concomitant]
     Indication: HYPERTENSION
     Dates: start: 20100910
  6. COREG [Concomitant]
     Indication: HYPERTENSION
     Dates: start: 20100910
  7. POTASSIUM [Concomitant]
     Indication: BLOOD POTASSIUM DECREASED
     Dates: start: 20100910
  8. LASIX [Concomitant]
     Indication: FLUID RETENTION
     Dates: start: 20100910
  9. WELLBUTRIN [Concomitant]
     Indication: DEPRESSION
     Dates: start: 20100910

REACTIONS (2)
  - Angioedema [Recovered/Resolved]
  - Off label use [Unknown]
